FAERS Safety Report 10744259 (Version 4)
Quarter: 2015Q2

REPORT INFORMATION
  Report Type: Report from Study
  Country: RU (occurrence: RU)
  Receive Date: 20150128
  Receipt Date: 20150619
  Transmission Date: 20150821
  Serious: Yes (Other)
  Sender: FDA-Public Use
  Company Number: RU-ASTRAZENECA-2015SE07649

PATIENT
  Age: 27388 Day
  Sex: Female

DRUGS (16)
  1. PYRACETAM [Concomitant]
     Dates: start: 20150115, end: 20150129
  2. CYTOFLAVIN [Concomitant]
     Dates: start: 20150115, end: 20150129
  3. STUDY PROCEDURE [Suspect]
     Active Substance: INVESTIGATIONAL PRODUCT
     Indication: ISCHAEMIC HEART DISEASE PROPHYLAXIS
     Route: 065
  4. PREDNIZOLONE [Suspect]
     Active Substance: PREDNISOLONE
     Route: 065
  5. GLYCIN [Concomitant]
     Dates: start: 20150115, end: 20150129
  6. OMEPRAZOL [Concomitant]
     Active Substance: OMEPRAZOLE
     Dates: start: 20150115, end: 20150129
  7. INDAPAMID [Concomitant]
     Active Substance: INDAPAMIDE
     Dates: start: 20150115, end: 20150129
  8. ATORVASTATIN [Concomitant]
     Active Substance: ATORVASTATIN
     Dates: start: 20141205
  9. AZD6140 [Suspect]
     Active Substance: TICAGRELOR
     Indication: ISCHAEMIC HEART DISEASE PROPHYLAXIS
     Dosage: 180 MG (TWO TABLETS) LOADING DOSE ON DAY 1
     Route: 048
     Dates: start: 20141206, end: 20141206
  10. AZD6140 [Suspect]
     Active Substance: TICAGRELOR
     Indication: ISCHAEMIC HEART DISEASE PROPHYLAXIS
     Route: 048
     Dates: start: 20141206, end: 20150305
  11. OMEPRAZOL [Concomitant]
     Active Substance: OMEPRAZOLE
     Dates: start: 20141205, end: 20141226
  12. LOSARTANI [Concomitant]
     Dates: end: 20141205
  13. LOSARTANI [Concomitant]
     Dates: start: 20141221
  14. CYTOFLAVIN [Concomitant]
     Dates: start: 20150130
  15. GLYCIN [Concomitant]
     Dates: start: 20141205, end: 20141226
  16. CITICOLIN [Concomitant]
     Dates: start: 20150101, end: 20150129

REACTIONS (1)
  - Platelet count increased [Recovered/Resolved]

NARRATIVE: CASE EVENT DATE: 20150123
